FAERS Safety Report 7665718-6 (Version None)
Quarter: 2011Q3

REPORT INFORMATION
  Report Type: 
  Country: None (occurrence: None)
  Receive Date: 20110806
  Receipt Date: 20110411
  Transmission Date: 20111222
  Serious: No
  Sender: FDA-Public Use
  Company Number: US-ABBOTT-11P-163-0719524-00

PATIENT
  Age: 59 Year
  Sex: Male
  Weight: 62.652 kg

DRUGS (9)
  1. NIASPAN [Suspect]
     Dosage: TOOK FOR 2 DAYS, AS DIRECTED BY MD, BUT PATIENT DECREASED IT AGAIN
     Route: 048
  2. NIASPAN [Suspect]
     Dosage: AT BEDTIME
     Route: 048
  3. ASPIRIN [Concomitant]
     Indication: PRODUCT USED FOR UNKNOWN INDICATION
     Route: 048
  4. ZETIA [Concomitant]
     Indication: PRODUCT USED FOR UNKNOWN INDICATION
  5. ALLEGRA [Concomitant]
     Indication: HYPERSENSITIVITY
     Dosage: 1 IN 1 D AS NEEDED
     Route: 048
  6. GLUCOSAMINE [Concomitant]
     Indication: ARTHROPATHY
     Dosage: IN THE MORNING
     Route: 048
  7. NIASPAN [Suspect]
     Indication: HIGH DENSITY LIPOPROTEIN DECREASED
     Dosage: AT BEDTIME
     Route: 058
  8. GLUCOSAMINE [Concomitant]
  9. SYNTHROID [Concomitant]
     Indication: HYPOTHYROIDISM
     Dosage: IN THE MORNING
     Route: 048

REACTIONS (3)
  - DYSPEPSIA [None]
  - INCORRECT DOSE ADMINISTERED [None]
  - FLUSHING [None]
